FAERS Safety Report 16230077 (Version 1)
Quarter: 2019Q2

REPORT INFORMATION
  Report Type: Spontaneous
  Country: CH (occurrence: CH)
  Receive Date: 20190423
  Receipt Date: 20190423
  Transmission Date: 20190711
  Serious: Yes (Other)
  Sender: FDA-Public Use
  Company Number: CH-ASTRAZENECA-2019SE61358

PATIENT
  Age: 25 Year
  Sex: Male

DRUGS (13)
  1. ASPIRIN CARDIO [Suspect]
     Active Substance: ASPIRIN
     Route: 065
  2. ENTRESTO [Suspect]
     Active Substance: SACUBITRIL\VALSARTAN
     Route: 065
  3. ROZEX (METRONIDAZOLE) [Concomitant]
     Active Substance: METRONIDAZOLE
  4. FEXOFENADINE [Concomitant]
     Active Substance: FEXOFENADINE\FEXOFENADINE HYDROCHLORIDE
     Dosage: AS NECESSARY
  5. CRESTOR [Suspect]
     Active Substance: ROSUVASTATIN CALCIUM
     Route: 048
  6. DILATREND [Suspect]
     Active Substance: CARVEDILOL
     Route: 065
  7. REPATHA [Concomitant]
     Active Substance: EVOLOCUMAB
     Dates: start: 2015
  8. ELIDEL [Concomitant]
     Active Substance: PIMECROLIMUS
     Dosage: AS NECESSARY
  9. ATARAX [Concomitant]
     Active Substance: HYDROXYZINE HYDROCHLORIDE
     Dosage: AS NECESSARY
  10. NIZORAL [Concomitant]
     Active Substance: KETOCONAZOLE
  11. EZETROL [Suspect]
     Active Substance: EZETIMIBE
     Route: 065
  12. DERMOVATE [Concomitant]
     Active Substance: CLOBETASOL
     Dosage: AS NECESSARY
  13. DEXERYL (GLYCEROL AND WHITE SOFT PARAFFIN AND LIQUID PARAFFIN) [Concomitant]
     Active Substance: GLYCERIN\MINERAL OIL\PETROLATUM

REACTIONS (1)
  - Prurigo [Not Recovered/Not Resolved]

NARRATIVE: CASE EVENT DATE: 2002
